FAERS Safety Report 9201958 (Version 1)
Quarter: 2013Q2

REPORT INFORMATION
  Report Type: Report from Study
  Country: US (occurrence: US)
  Receive Date: 20130401
  Receipt Date: 20130401
  Transmission Date: 20140414
  Serious: Yes (Other)
  Sender: FDA-Public Use
  Company Number: US-ROCHE-1207019

PATIENT
  Sex: 0

DRUGS (4)
  1. CAPECITABINE [Suspect]
     Indication: NEOPLASM
     Route: 048
  2. BEVACIZUMAB [Suspect]
     Indication: NEOPLASM
     Route: 042
  3. OXALIPLATIN [Suspect]
     Indication: NEOPLASM
     Route: 042
  4. EVEROLIMUS [Suspect]
     Indication: NEOPLASM
     Route: 048

REACTIONS (14)
  - Diarrhoea [Unknown]
  - Intestinal perforation [Unknown]
  - Female genital tract fistula [Unknown]
  - Hypertriglyceridaemia [Unknown]
  - Hyperglycaemia [Unknown]
  - Hypoalbuminaemia [Unknown]
  - Hyponatraemia [Unknown]
  - Neuropathy peripheral [Unknown]
  - Neutropenia [Unknown]
  - Lymphopenia [Unknown]
  - Thrombocytopenia [Unknown]
  - Hypertension [Unknown]
  - Deep vein thrombosis [Unknown]
  - Arterial thrombosis [Unknown]
